FAERS Safety Report 17400565 (Version 2)
Quarter: 2020Q1

REPORT INFORMATION
  Report Type: Spontaneous
  Country: DE (occurrence: DE)
  Receive Date: 20200211
  Receipt Date: 20200226
  Transmission Date: 20200409
  Serious: Yes (Other)
  Sender: FDA-Public Use
  Company Number: DE-TEVA-2020-DE-1181775

PATIENT
  Age: 59 Year
  Sex: Male

DRUGS (2)
  1. TADALAFIL ABZ 5 MG FILMTABLETTEN [Suspect]
     Active Substance: TADALAFIL
     Indication: PROSTATIC DISORDER
  2. TADALAFIL ABZ 5 MG FILMTABLETTEN [Suspect]
     Active Substance: TADALAFIL
     Indication: ERECTILE DYSFUNCTION
     Dosage: 5 MILLIGRAM DAILY; USED FOR 6 DAYS
     Route: 048
     Dates: start: 201912

REACTIONS (2)
  - Haematochezia [Recovered/Resolved]
  - Dyspepsia [Recovered/Resolved]
